FAERS Safety Report 10889252 (Version 2)
Quarter: 2015Q4

REPORT INFORMATION
  Report Type: Other
  Country: IT (occurrence: IT)
  Receive Date: 20150305
  Receipt Date: 20151129
  Transmission Date: 20160304
  Serious: Yes (Hospitalization)
  Sender: FDA-Public Use
  Company Number: IT-MYLANLABS-2015M1005973

PATIENT

DRUGS (8)
  1. RIFOCIN                            /00047702/ [Suspect]
     Active Substance: RIFAMYCIN SODIUM
     Indication: DERMATITIS
     Dosage: UNK UNK, QD
     Route: 061
  2. ITRACONAZOLE. [Suspect]
     Active Substance: ITRACONAZOLE
     Indication: DERMATITIS
     Dosage: UNK, QD
     Route: 048
  3. COTAREG [Concomitant]
     Active Substance: HYDROCHLOROTHIAZIDE\VALSARTAN
     Indication: HYPERTENSION
     Dosage: 1 DF
     Route: 048
  4. URSOBIL [Concomitant]
     Dosage: 600 UNK, UNK
  5. TACHIPIRINA [Concomitant]
     Active Substance: ACETAMINOPHEN
     Indication: PRODUCT USED FOR UNKNOWN INDICATION
     Dosage: UNK, PRN
  6. URSOBIL [Concomitant]
     Indication: PRODUCT USED FOR UNKNOWN INDICATION
     Dosage: 450 MG
     Route: 048
     Dates: end: 20141114
  7. AUGMENTIN [Suspect]
     Active Substance: AMOXICILLIN\CLAVULANATE POTASSIUM
     Indication: DERMATITIS
     Dosage: 3 DF, QD
     Route: 048
     Dates: start: 20141112, end: 20141114
  8. LIMNOS [Concomitant]
     Indication: PRODUCT USED FOR UNKNOWN INDICATION
     Dosage: 20 MG
     Route: 048

REACTIONS (4)
  - Pruritus [Recovering/Resolving]
  - Intertrigo [Recovering/Resolving]
  - Toxic skin eruption [Recovering/Resolving]
  - Skin exfoliation [Recovering/Resolving]

NARRATIVE: CASE EVENT DATE: 20141114
